FAERS Safety Report 4436330-7 (Version None)
Quarter: 2004Q3

REPORT INFORMATION
  Report Type: 
  Country: None (occurrence: None)
  Receive Date: 20040728
  Receipt Date: 20030606
  Transmission Date: 20050211
  Serious: Yes (Death, Hospitalization)
  Sender: FDA-Public Use
  Company Number: 201144

PATIENT
  Age: 64 Year
  Sex: Male
  Weight: 96.2 kg

DRUGS (8)
  1. RITUXAN [Suspect]
     Indication: NON-HODGKIN'S LYMPHOMA
     Dosage: 250 MG/M2, X2, INTRAVENOUS
     Route: 042
     Dates: start: 20030114, end: 20030122
  2. IBRITUMOMAB TIUXETAN (IBRITUMOMAB TIUXETAN, YTTRIUM-90) [Suspect]
     Indication: NON-HODGKIN'S LYMPHOMA
     Dosage: 5 MCI, SINGLE, INTRAVENOUS
     Route: 042
     Dates: start: 20030114, end: 20030114
  3. ZEVALIN [Suspect]
     Indication: NON-HODGKIN'S LYMPHOMA
     Dosage: 32 MCI, SINGLE, INTRAVENOUS
     Route: 042
     Dates: start: 20030122, end: 20030122
  4. IN-111 ZEVALIN (IBRITUMOMAB TIUXETIAN, INDIUM-111) [Suspect]
     Indication: NON-HODGKIN'S LYMPHOMA
     Dosage: 5 MCI, SINGLE, INTRAVENOUS
     Route: 042
     Dates: start: 20030114, end: 20030114
  5. COUMADIN [Concomitant]
  6. HYDROCHLOROTHIAZIDE [Concomitant]
  7. FUROSEMIDE [Concomitant]
  8. ANTIEMETICS (ANTIEMETICS) [Concomitant]

REACTIONS (4)
  - DISEASE PROGRESSION [None]
  - PAIN [None]
  - PANCYTOPENIA [None]
  - RENAL FAILURE [None]
